FAERS Safety Report 6839566-0 (Version None)
Quarter: 2010Q3

REPORT INFORMATION
  Report Type: 
  Country: None (occurrence: None)
  Receive Date: 20100714
  Receipt Date: 20100309
  Transmission Date: 20110219
  Serious: No
  Sender: FDA-Public Use
  Company Number: A0847576A

PATIENT
  Age: 65 Year
  Sex: Male

DRUGS (6)
  1. FLOVENT [Suspect]
     Indication: ASTHMA
     Dosage: 1PUFF TWICE PER DAY
     Route: 055
     Dates: start: 20100204, end: 20100301
  2. PROVENTIL [Concomitant]
  3. ALBUTEROL [Concomitant]
  4. HYDROCHLOROTHIAZIDE [Concomitant]
  5. VITAMIN E [Concomitant]
  6. GARLIQUE [Concomitant]

REACTIONS (9)
  - ABNORMAL SENSATION IN EYE [None]
  - APHONIA [None]
  - CHEST DISCOMFORT [None]
  - COUGH [None]
  - DISTURBANCE IN ATTENTION [None]
  - EYE PAIN [None]
  - HEADACHE [None]
  - LACRIMATION INCREASED [None]
  - VISION BLURRED [None]
